FAERS Safety Report 9913833 (Version 1)
Quarter: 2014Q1

REPORT INFORMATION
  Report Type: Spontaneous
  Country: US (occurrence: None)
  Receive Date: 20140214
  Receipt Date: 20140214
  Transmission Date: 20141002
  Serious: Yes (Death)
  Sender: FDA-Public Use
  Company Number: AUR-APL-2014-01417

PATIENT
  Age: 53 Year
  Sex: Female

DRUGS (11)
  1. GABAPENTIN (GABAPENTIN) [Suspect]
  2. LISINOPRIL (LISINOPRIL) [Suspect]
  3. METFORMIN (METFORMIN) [Suspect]
     Indication: PRODUCT USED FOR UNKNOWN INDICATION
  4. MIRTAZAPINE (MIRTAZAPINE) [Suspect]
     Indication: PRODUCT USED FOR UNKNOWN INDICATION
  5. VALPROATE SEMISODIUM [Suspect]
     Indication: PRODUCT USED FOR UNKNOWN INDICATION
  6. DIAZEPAM (DIAZEPAM) [Suspect]
  7. BUPROPION (BUPROPION) [Suspect]
  8. DULOXETINE (DULOXETINE) (DULOXETINE) [Suspect]
  9. OXYBUTYNIN (OXYBUTYNIN) [Suspect]
  10. LOVASTATIN (LOVASTATIN) [Suspect]
  11. ACETAMINOPHEN (PARACETAMOL) [Suspect]

REACTIONS (3)
  - Completed suicide [None]
  - Toxicity to various agents [None]
  - Exposure via ingestion [None]
